FAERS Safety Report 5897881-1 (Version None)
Quarter: 2008Q3

REPORT INFORMATION
  Report Type: 
  Country: None (occurrence: None)
  Receive Date: 20080924
  Receipt Date: 20080924
  Transmission Date: 20090109
  Serious: No
  Sender: FDA-Public Use
  Company Number: None

PATIENT
  Sex: Female
  Weight: 62.5964 kg

DRUGS (6)
  1. REYATAZ [Suspect]
     Indication: ACQUIRED IMMUNODEFICIENCY SYNDROME
     Dosage: 300 MG DAILY ORAL
     Route: 048
     Dates: start: 20080301
  2. EPZICOM [Concomitant]
  3. SUSTIVA [Concomitant]
  4. NORVIR [Concomitant]
  5. AMBIEN [Concomitant]
  6. ATENOLOL [Concomitant]

REACTIONS (1)
  - NEPHROLITHIASIS [None]
